FAERS Safety Report 5553585-6 (Version None)
Quarter: 2007Q4

REPORT INFORMATION
  Report Type: 
  Country: None (occurrence: None)
  Receive Date: 20071213
  Receipt Date: 20071120
  Transmission Date: 20080405
  Serious: No
  Sender: FDA-Public Use
  Company Number: US-BAYER-200715487NA

PATIENT
  Age: 42 Year
  Sex: Female
  Weight: 49 kg

DRUGS (1)
  1. MAGNEVIST [Suspect]
     Indication: NUCLEAR MAGNETIC RESONANCE IMAGING
     Dosage: TOTAL DAILY DOSE: 20 ML
     Route: 042
     Dates: start: 20071107, end: 20071107

REACTIONS (2)
  - MALAISE [None]
  - NAUSEA [None]
